FAERS Safety Report 18959864 (Version 3)
Quarter: 2021Q2

REPORT INFORMATION
  Report Type: Spontaneous
  Country: FR (occurrence: FR)
  Receive Date: 20210302
  Receipt Date: 20210419
  Transmission Date: 20210717
  Serious: Yes (Hospitalization, Other)
  Sender: FDA-Public Use
  Company Number: FR-JNJFOC-20210233707

PATIENT
  Age: 19 Year
  Sex: Female
  Weight: 74 kg

DRUGS (6)
  1. TRANXENE [Concomitant]
     Active Substance: CLORAZEPATE DIPOTASSIUM
     Indication: ANXIETY
     Route: 048
     Dates: start: 20210113
  2. LITHIUM. [Concomitant]
     Active Substance: LITHIUM
     Indication: DRUG THERAPY
     Route: 048
     Dates: start: 20210126
  3. ZOLPIDEM [Concomitant]
     Active Substance: ZOLPIDEM TARTRATE
     Indication: SLEEP DISORDER
     Route: 048
     Dates: start: 20201110
  4. SPRAVATO [Suspect]
     Active Substance: ESKETAMINE
     Indication: SUICIDAL IDEATION
     Dates: start: 20210215, end: 20210215
  5. SPRAVATO [Suspect]
     Active Substance: ESKETAMINE
     Dates: start: 20210218, end: 20210218
  6. LAMICTAL [Concomitant]
     Active Substance: LAMOTRIGINE
     Indication: DRUG THERAPY
     Route: 048
     Dates: start: 20210114

REACTIONS (7)
  - Loss of consciousness [Recovered/Resolved]
  - Hallucination [Unknown]
  - Urinary retention [Unknown]
  - Dissociation [Unknown]
  - Suicidal ideation [Recovered/Resolved]
  - Drug peak level [Recovered/Resolved]
  - Sedation [Recovered/Resolved]

NARRATIVE: CASE EVENT DATE: 20210215
